FAERS Safety Report 7493643-2 (Version None)
Quarter: 2011Q2

REPORT INFORMATION
  Report Type: 
  Country: None (occurrence: None)
  Receive Date: 20110520
  Receipt Date: 20110509
  Transmission Date: 20111010
  Serious: Yes (Hospitalization)
  Sender: FDA-Public Use
  Company Number: JP-JNJFOC-20110412146

PATIENT
  Sex: Male

DRUGS (7)
  1. CONTRAST AGENT [Interacting]
     Indication: PRODUCT USED FOR UNKNOWN INDICATION
     Route: 065
  2. EPADEL [Concomitant]
     Indication: DYSLIPIDAEMIA
     Route: 048
     Dates: start: 20110131
  3. ASPIRIN [Concomitant]
     Indication: CEREBRAL INFARCTION
     Route: 048
     Dates: start: 20081018
  4. LEVOFLOXACIN [Suspect]
     Indication: PNEUMONIA BACTERIAL
     Route: 048
     Dates: start: 20110412, end: 20110414
  5. CRESTOR [Interacting]
     Indication: DYSLIPIDAEMIA
     Route: 048
     Dates: start: 20081018, end: 20110414
  6. WARFARIN SODIUM [Concomitant]
     Indication: CARDIAC ANEURYSM
     Route: 048
     Dates: start: 20081031
  7. RABEPRAZOLE SODIUM [Concomitant]
     Indication: PROPHYLAXIS AGAINST GASTROINTESTINAL ULCER
     Route: 048
     Dates: start: 20081018

REACTIONS (3)
  - RHABDOMYOLYSIS [None]
  - DRUG INTERACTION [None]
  - RENAL IMPAIRMENT [None]
